FAERS Safety Report 6676072-0 (Version None)
Quarter: 2010Q2

REPORT INFORMATION
  Report Type: 
  Country: None (occurrence: None)
  Receive Date: 20100412
  Receipt Date: 20100331
  Transmission Date: 20101027
  Serious: Yes (Other)
  Sender: FDA-Public Use
  Company Number: AU-SOLVAY-00310002093

PATIENT
  Sex: Female

DRUGS (2)
  1. CREON [Suspect]
     Indication: PANCREATIC CARCINOMA
     Dosage: DAILY DOSE:  UNKNOWN; CREON 5000
     Route: 065
  2. CREON [Suspect]
     Dosage: DAILY DOSE:  UNKNOWN; CREON 40000
     Route: 065

REACTIONS (1)
  - HEPATIC ENZYME INCREASED [None]
